FAERS Safety Report 6765490-8 (Version None)
Quarter: 2010Q2

REPORT INFORMATION
  Report Type: 
  Country: None (occurrence: None)
  Receive Date: 20100611
  Receipt Date: 20100607
  Transmission Date: 20101027
  Serious: Yes (Death)
  Sender: FDA-Public Use
  Company Number: PHHY2010US36898

PATIENT
  Sex: Female

DRUGS (1)
  1. GLEEVEC [Suspect]
     Indication: CERVIX CARCINOMA
     Dosage: 400 MG, DAILY
     Route: 048
     Dates: start: 20100118

REACTIONS (1)
  - DEATH [None]
